FAERS Safety Report 18538885 (Version 1)
Quarter: 2020Q4

REPORT INFORMATION
  Report Type: Spontaneous
  Country: CN (occurrence: CN)
  Receive Date: 20201124
  Receipt Date: 20201124
  Transmission Date: 20210114
  Serious: Yes (Hospitalization)
  Sender: FDA-Public Use
  Company Number: CN-ROCHE-2719490

PATIENT
  Age: 69 Year
  Sex: Male
  Weight: 55 kg

DRUGS (14)
  1. CYCLOPHOSPHAMIDE. [Suspect]
     Active Substance: CYCLOPHOSPHAMIDE
     Indication: NON-HODGKIN^S LYMPHOMA
     Route: 041
     Dates: start: 20201108, end: 20201108
  2. VINDESINE SULFATE [Suspect]
     Active Substance: VINDESINE SULFATE
     Indication: BURKITT^S LYMPHOMA
  3. SODIUM CHLORIDE. [Concomitant]
     Active Substance: SODIUM CHLORIDE
     Indication: BURKITT^S LYMPHOMA
     Dosage: LOT NO.20083008M, SOLVENT FOR CYCLOPHOSPHAMIDE FOR INJECTION
     Route: 042
     Dates: start: 20201108, end: 20201108
  4. RITUXIMAB. [Suspect]
     Active Substance: RITUXIMAB
     Indication: BURKITT^S LYMPHOMA
  5. ETOPOSIDE. [Suspect]
     Active Substance: ETOPOSIDE
     Indication: NON-HODGKIN^S LYMPHOMA
     Route: 041
     Dates: start: 20201103, end: 20201107
  6. CYCLOPHOSPHAMIDE. [Suspect]
     Active Substance: CYCLOPHOSPHAMIDE
     Indication: BURKITT^S LYMPHOMA
  7. GLUCOSE [Concomitant]
     Active Substance: DEXTROSE
     Indication: NON-HODGKIN^S LYMPHOMA
     Dosage: LOT NO.1908072N, SOLVENT FOR DOXORUBICIN HYDROCHLORIDE LIPOSOME INJECTION
     Route: 041
     Dates: start: 20201103, end: 20201103
  8. SODIUM CHLORIDE. [Concomitant]
     Active Substance: SODIUM CHLORIDE
     Indication: NON-HODGKIN^S LYMPHOMA
     Dosage: LOT NO. 20072001V, SOLVENT FOR ETOPOSIDE INJECTION AND VINDESINE SULFATE FOR INJECTION
     Route: 042
     Dates: start: 20201103, end: 20201103
  9. DOXORUBICIN HYDROCHLORIDE LIPOSOME [Suspect]
     Active Substance: DOXORUBICIN HYDROCHLORIDE
     Indication: NON-HODGKIN^S LYMPHOMA
     Route: 042
     Dates: start: 20201103, end: 20201103
  10. DOXORUBICIN HYDROCHLORIDE LIPOSOME [Suspect]
     Active Substance: DOXORUBICIN HYDROCHLORIDE
     Indication: BURKITT^S LYMPHOMA
  11. VINDESINE SULFATE [Suspect]
     Active Substance: VINDESINE SULFATE
     Indication: NON-HODGKIN^S LYMPHOMA
     Route: 041
     Dates: start: 20201103, end: 20201107
  12. RITUXIMAB. [Suspect]
     Active Substance: RITUXIMAB
     Indication: NON-HODGKIN^S LYMPHOMA
     Route: 041
     Dates: start: 20201103, end: 20201103
  13. ETOPOSIDE. [Suspect]
     Active Substance: ETOPOSIDE
     Indication: BURKITT^S LYMPHOMA
  14. GLUCOSE [Concomitant]
     Active Substance: DEXTROSE
     Indication: BURKITT^S LYMPHOMA
     Dosage: LOT NO. 20063015V, SOLVENT FOR RITUXIMAB
     Route: 041
     Dates: start: 20201103, end: 20201103

REACTIONS (6)
  - Thrombocytopenia [Recovering/Resolving]
  - Pyrexia [Unknown]
  - White blood cell count decreased [Recovering/Resolving]
  - Off label use [Unknown]
  - Granulocytopenia [Recovering/Resolving]
  - Intentional product use issue [Unknown]

NARRATIVE: CASE EVENT DATE: 20201114
